FAERS Safety Report 7105825-X (Version None)
Quarter: 2010Q4

REPORT INFORMATION
  Report Type: 
  Country: None (occurrence: None)
  Receive Date: 20101116
  Receipt Date: 20101105
  Transmission Date: 20110411
  Serious: Yes (Other)
  Sender: FDA-Public Use
  Company Number: AU-JNJFOC-20101102565

PATIENT
  Sex: Male

DRUGS (1)
  1. REMICADE [Suspect]
     Indication: PSORIASIS
     Route: 042

REACTIONS (8)
  - ARTHRALGIA [None]
  - BACK PAIN [None]
  - COUGH [None]
  - DYSPNOEA [None]
  - FEELING HOT [None]
  - INFUSION RELATED REACTION [None]
  - JOINT STIFFNESS [None]
  - SERUM SICKNESS-LIKE REACTION [None]
